FAERS Safety Report 9128160 (Version 2)
Quarter: 2013Q2

REPORT INFORMATION
  Report Type: Spontaneous
  Country: RU (occurrence: RU)
  Receive Date: 20130228
  Receipt Date: 20130411
  Transmission Date: 20140414
  Serious: Yes (Hospitalization)
  Sender: FDA-Public Use
  Company Number: RU-BAYER-2013-023296

PATIENT
  Age: 61 Year
  Sex: Female

DRUGS (2)
  1. ULTRAVIST [Suspect]
     Indication: ENDOSCOPIC RETROGRADE CHOLANGIOPANCREATOGRAPHY
     Dosage: ULTRAVIST WAS DILUTED 0,25% SOLUTION OF NOVOCAINE IN THE RATIO 1:1, ONCE
     Dates: start: 20130124, end: 20130124
  2. NOVOCAIN [Suspect]
     Dosage: UNK
     Dates: start: 20130124

REACTIONS (2)
  - Pancreatic necrosis [Recovered/Resolved]
  - Wrong technique in drug usage process [None]
